FAERS Safety Report 5192705-2 (Version None)
Quarter: 2006Q4

REPORT INFORMATION
  Report Type: 
  Country: None (occurrence: None)
  Receive Date: 20061228
  Receipt Date: 20061219
  Transmission Date: 20070319
  Serious: Yes (Death, Hospitalization)
  Sender: FDA-Public Use
  Company Number: FR-BRISTOL-MYERS SQUIBB COMPANY-13622485

PATIENT
  Age: 34 Year
  Sex: Male
  Weight: 60 kg

DRUGS (6)
  1. AMIKLIN INJ [Suspect]
     Dates: start: 20060927, end: 20061002
  2. CORDARONE [Suspect]
     Route: 048
     Dates: start: 20060927, end: 20061005
  3. LASIX [Suspect]
     Indication: RENAL FAILURE ACUTE
     Route: 042
  4. TIENAM [Suspect]
     Route: 042
     Dates: start: 20060927, end: 20060928
  5. TRIFLUCAN [Suspect]
     Indication: FUNGAL INFECTION
     Route: 042
     Dates: start: 20060927, end: 20061006
  6. VANCOMYCIN [Suspect]
     Route: 042
     Dates: start: 20060927, end: 20061014

REACTIONS (2)
  - DERMATITIS BULLOUS [None]
  - THROMBOCYTOPENIA [None]
